FAERS Safety Report 25858593 (Version 1)
Quarter: 2025Q3

REPORT INFORMATION
  Report Type: Spontaneous
  Country: US (occurrence: US)
  Receive Date: 20250929
  Receipt Date: 20250929
  Transmission Date: 20251021
  Serious: Yes (Hospitalization)
  Sender: STRIDES
  Company Number: US-STRIDES ARCOLAB LIMITED-2025SP002013

PATIENT
  Age: 12 Year
  Sex: Female

DRUGS (6)
  1. PREDNISOLONE [Suspect]
     Active Substance: PREDNISOLONE
     Indication: Henoch-Schonlein purpura
     Route: 065
  2. PREDNISOLONE [Suspect]
     Active Substance: PREDNISOLONE
     Indication: Keratitis interstitial
     Route: 048
  3. PREDNISOLONE [Suspect]
     Active Substance: PREDNISOLONE
     Indication: Iridocyclitis
  4. PREDNISOLONE [Suspect]
     Active Substance: PREDNISOLONE
     Indication: Deafness neurosensory
  5. METHOTREXATE [Suspect]
     Active Substance: METHOTREXATE
     Indication: Cogan^s syndrome
     Route: 058
  6. Immunoglobulin [Concomitant]
     Indication: Kawasaki^s disease
     Route: 042

REACTIONS (2)
  - Multiple-drug resistance [Unknown]
  - Off label use [Unknown]
